FAERS Safety Report 10193236 (Version 1)
Quarter: 2014Q2

REPORT INFORMATION
  Report Type: Spontaneous
  Country: US (occurrence: US)
  Receive Date: 20140524
  Receipt Date: 20140524
  Transmission Date: 20141212
  Serious: No
  Sender: FDA-Public Use
  Company Number: US-SA-2013SA120263

PATIENT
  Age: 67 Year
  Sex: Female

DRUGS (4)
  1. SOLOSTAR [Suspect]
     Indication: TYPE 2 DIABETES MELLITUS
     Dosage: DOSE - 20-30 UNITS?FREQUENCY - DAY AND NIGHT DOSE:20 UNIT(S)
     Route: 051
     Dates: start: 2012
  2. LANTUS SOLOSTAR [Suspect]
     Indication: TYPE 2 DIABETES MELLITUS
     Dosage: DOSE:40 UNIT(S)
     Route: 051
  3. LANTUS SOLOSTAR [Suspect]
     Indication: TYPE 2 DIABETES MELLITUS
     Dosage: DOSE - 20- 30 UNITS?FREQUENCY - DAY AND NIGHT DOSE:20 UNIT(S)
     Route: 051
     Dates: start: 2012
  4. NOVOLOG [Concomitant]
     Route: 065

REACTIONS (2)
  - Hyperglycaemia [Unknown]
  - Diarrhoea [Unknown]
